FAERS Safety Report 7772228-4 (Version None)
Quarter: 2011Q3

REPORT INFORMATION
  Report Type: 
  Country: None (occurrence: None)
  Receive Date: 20110922
  Receipt Date: 20100217
  Transmission Date: 20111222
  Serious: No
  Sender: FDA-Public Use
  Company Number: US-ASTRAZENECA-2008UW23341

PATIENT
  Age: 43 Year
  Sex: Female
  Weight: 136.1 kg

DRUGS (4)
  1. SEROQUEL [Suspect]
     Indication: DEPRESSION
     Dosage: 100-200 MG
     Route: 048
     Dates: start: 20041108, end: 20080101
  2. AMBIEN [Concomitant]
     Indication: DEPRESSION
  3. TOPAMAX [Concomitant]
     Dates: end: 20070719
  4. HALDOL [Concomitant]

REACTIONS (3)
  - DIABETES MELLITUS [None]
  - TYPE 2 DIABETES MELLITUS [None]
  - ADVERSE DRUG REACTION [None]
